FAERS Safety Report 12267911 (Version 3)
Quarter: 2016Q2

REPORT INFORMATION
  Report Type: Report from Study
  Country: BR (occurrence: BR)
  Receive Date: 20160414
  Receipt Date: 20160426
  Transmission Date: 20160815
  Serious: Yes (Other)
  Sender: FDA-Public Use
  Company Number: PHHY2016BR046271

PATIENT
  Age: 46 Year
  Sex: Female
  Weight: 70 kg

DRUGS (4)
  1. ZOMETA [Concomitant]
     Active Substance: ZOLEDRONIC ACID
     Indication: PRODUCT USED FOR UNKNOWN INDICATION
     Dosage: UNK
     Route: 042
  2. AFINITOR [Suspect]
     Active Substance: EVEROLIMUS
     Indication: BREAST CANCER METASTATIC
     Dosage: 1 DF OF 10 MG, QD
     Route: 048
     Dates: start: 201408
  3. AROMASIN [Suspect]
     Active Substance: EXEMESTANE
     Indication: BREAST CANCER
     Dosage: 1 DF OF 25 MG, QD
     Route: 048
     Dates: start: 201408
  4. MORPHINE [Suspect]
     Active Substance: MORPHINE
     Indication: PRODUCT USED FOR UNKNOWN INDICATION
     Dosage: UNK
     Route: 065

REACTIONS (15)
  - Hypophagia [Unknown]
  - Weight decreased [Unknown]
  - Swelling face [Unknown]
  - Device breakage [Unknown]
  - Pain [Unknown]
  - Cough [Not Recovered/Not Resolved]
  - Laryngeal disorder [Unknown]
  - Hypersensitivity [Unknown]
  - Alopecia [Recovering/Resolving]
  - Bone disorder [Unknown]
  - Device dislocation [Unknown]
  - Mouth injury [Not Recovered/Not Resolved]
  - Oral herpes [Not Recovered/Not Resolved]
  - Pruritus [Not Recovered/Not Resolved]
  - Diarrhoea [Recovering/Resolving]

NARRATIVE: CASE EVENT DATE: 201408
